FAERS Safety Report 7512947-8 (Version None)
Quarter: 2011Q2

REPORT INFORMATION
  Report Type: 
  Country: None (occurrence: None)
  Receive Date: 20110531
  Receipt Date: 20101201
  Transmission Date: 20111010
  Serious: No
  Sender: FDA-Public Use
  Company Number: US-NOVEN-ALL1-2010-06257

PATIENT
  Sex: Male
  Weight: 58.957 kg

DRUGS (2)
  1. DAYTRANA [Suspect]
     Dosage: 20 MG, 1X/DAY:QD
     Route: 062
     Dates: start: 20060101
  2. ALLEGRA D 24 HOUR [Concomitant]
     Dosage: UNK MG, 1X/DAY:QD (ONE TABLET OF 180 FEXOFENADINE HYDROCHLORIDE/240MGPSEUDOEPHEDRINE HYDROCHLORIDE)
     Route: 048

REACTIONS (3)
  - WRONG TECHNIQUE IN DRUG USAGE PROCESS [None]
  - NO ADVERSE EVENT [None]
  - PRODUCT ADHESION ISSUE [None]
